FAERS Safety Report 5509880-X (Version None)
Quarter: 2007Q4

REPORT INFORMATION
  Report Type: 
  Country: None (occurrence: None)
  Receive Date: 20071107
  Receipt Date: 20071107
  Transmission Date: 20080405
  Serious: No
  Sender: FDA-Public Use
  Company Number: None

PATIENT

DRUGS (1)
  1. BONIVA [Suspect]

REACTIONS (4)
  - ARTHRALGIA [None]
  - BONE PAIN [None]
  - MOBILITY DECREASED [None]
  - MYALGIA [None]
